FAERS Safety Report 4659696-1 (Version None)
Quarter: 2005Q2

REPORT INFORMATION
  Report Type: 
  Country: None (occurrence: None)
  Receive Date: 20050420
  Receipt Date: 20050207
  Transmission Date: 20051028
  Serious: No
  Sender: FDA-Public Use
  Company Number: PHEH2005US01749

PATIENT
  Age: 80 Year
  Sex: Male

DRUGS (7)
  1. ENABLEX [Suspect]
     Indication: HYPERTONIC BLADDER
     Dosage: 7.5 MG QD
     Dates: start: 20050204, end: 20050204
  2. ZOLADEX [Suspect]
     Dates: start: 20050204
  3. EULEXIN [Concomitant]
  4. PREVACID [Concomitant]
  5. FIORICET [Concomitant]
  6. AMBIEN [Concomitant]
  7. ATIVAN [Concomitant]

REACTIONS (1)
  - DIZZINESS [None]
